FAERS Safety Report 6252107-4 (Version None)
Quarter: 2009Q2

REPORT INFORMATION
  Report Type: 
  Country: None (occurrence: None)
  Receive Date: 20090630
  Receipt Date: 20080411
  Transmission Date: 20091009
  Serious: Yes (Hospitalization)
  Sender: FDA-Public Use
  Company Number: US-ROCHE-639066

PATIENT
  Sex: Female

DRUGS (7)
  1. ENFUVIRTIDE [Suspect]
     Route: 065
     Dates: start: 20060224, end: 20080509
  2. APTIVUS [Concomitant]
     Dates: start: 20060127, end: 20060630
  3. NORVIR [Concomitant]
     Dates: start: 20060127, end: 20080814
  4. TRUVADA [Concomitant]
     Dosage: FREQUENCY REPORTED AS QD
     Dates: start: 20060127, end: 20080814
  5. PREZISTA [Concomitant]
     Dates: start: 20060630, end: 20080814
  6. BACTRIM DS [Concomitant]
     Dates: start: 20071201, end: 20071214
  7. LEVAQUIN [Concomitant]
     Dosage: FREQUENCY REPORTED AS QD
     Dates: start: 20071201, end: 20071214

REACTIONS (1)
  - VIRAL INFECTION [None]
